FAERS Safety Report 5525676-7 (Version None)
Quarter: 2007Q4

REPORT INFORMATION
  Report Type: 
  Country: None (occurrence: None)
  Receive Date: 20071126
  Receipt Date: 20071119
  Transmission Date: 20080405
  Serious: Yes (Life-Threatening, Hospitalization)
  Sender: FDA-Public Use
  Company Number: IT-MERCK-0711ITA00015

PATIENT
  Age: 60 Year
  Sex: Female

DRUGS (1)
  1. MAXALT [Suspect]
     Indication: HEMICEPHALALGIA
     Route: 048
     Dates: start: 20071109, end: 20071109

REACTIONS (2)
  - ACUTE CORONARY SYNDROME [None]
  - ACUTE MYOCARDIAL INFARCTION [None]
